FAERS Safety Report 8004833-4 (Version None)
Quarter: 2011Q4

REPORT INFORMATION
  Report Type: 
  Country: None (occurrence: None)
  Receive Date: 20111223
  Receipt Date: 20111214
  Transmission Date: 20120403
  Serious: Yes (Other)
  Sender: FDA-Public Use
  Company Number: HU-BRISTOL-MYERS SQUIBB COMPANY-16298390

PATIENT
  Age: 68 Year
  Sex: Female

DRUGS (2)
  1. IRBESARTAN [Suspect]
     Indication: HYPERTENSION
     Dosage: APROVEL 150MG-ONG.DOSAGE 2*12. APROVEL 300MG,ORAL,DOSAGE-2*12-START DT(2011-11/2011).
     Route: 048
     Dates: start: 20010101
  2. LEVOTHYROXINE SODIUM [Concomitant]
     Indication: HYPOTHYROIDISM
     Dosage: FORMULATION-TABLET
     Route: 048

REACTIONS (2)
  - CUTANEOUS VASCULITIS [None]
  - ARTHRALGIA [None]
